FAERS Safety Report 18445371 (Version 1)
Quarter: 2020Q4

REPORT INFORMATION
  Report Type: Report from Study
  Country: MX (occurrence: MX)
  Receive Date: 20201030
  Receipt Date: 20201030
  Transmission Date: 20210114
  Serious: Yes (Other)
  Sender: FDA-Public Use
  Company Number: NVSC2020MX288277

PATIENT
  Sex: Female
  Weight: 54 kg

DRUGS (1)
  1. ENTRESTO [Suspect]
     Active Substance: SACUBITRIL\VALSARTAN
     Indication: CARDIAC FAILURE
     Dosage: 50 MG, QD, STARTED 4 MONTHS
     Route: 048

REACTIONS (6)
  - Dyspnoea [Recovering/Resolving]
  - COVID-19 [Recovering/Resolving]
  - Oropharyngeal discomfort [Recovering/Resolving]
  - Product prescribing error [Unknown]
  - Inappropriate schedule of product administration [Unknown]
  - Underdose [Unknown]
